FAERS Safety Report 8342392-7 (Version None)
Quarter: 2012Q2

REPORT INFORMATION
  Report Type: 
  Country: None (occurrence: None)
  Receive Date: 20120508
  Receipt Date: 20120427
  Transmission Date: 20120825
  Serious: No
  Sender: FDA-Public Use
  Company Number: US-BIOGENIDEC-2011BI004573

PATIENT
  Sex: Female

DRUGS (1)
  1. TYSABRI [Suspect]
     Indication: MULTIPLE SCLEROSIS
     Route: 042
     Dates: start: 20100517

REACTIONS (8)
  - MEMORY IMPAIRMENT [None]
  - SPEECH DISORDER [None]
  - NECK PAIN [None]
  - HEADACHE [None]
  - SPONDYLOARTHROPATHY [None]
  - DYSGRAPHIA [None]
  - FEELING JITTERY [None]
  - MUSCULOSKELETAL STIFFNESS [None]
